FAERS Safety Report 5840829-6 (Version None)
Quarter: 2008Q3

REPORT INFORMATION
  Report Type: 
  Country: None (occurrence: None)
  Receive Date: 20080730
  Receipt Date: 20080610
  Transmission Date: 20090109
  Serious: Yes (Other)
  Sender: FDA-Public Use
  Company Number: PHEH2008US05020

PATIENT
  Age: 84 Year
  Sex: Female

DRUGS (2)
  1. TEKTURNA [Suspect]
     Indication: HYPERTENSION
     Dosage: 150 MG; 150 MG
     Dates: start: 20080528, end: 20080603
  2. PREDNISOLONE ACETATE [Concomitant]

REACTIONS (3)
  - BLOOD PRESSURE INCREASED [None]
  - FACE OEDEMA [None]
  - JOINT SWELLING [None]
